FAERS Safety Report 9472324 (Version 2)
Quarter: 2013Q3

REPORT INFORMATION
  Report Type: Spontaneous
  Country: FR (occurrence: FR)
  Receive Date: 20130823
  Receipt Date: 20130910
  Transmission Date: 20140515
  Serious: No
  Sender: FDA-Public Use
  Company Number: FR-JNJFOC-20130809303

PATIENT
  Sex: Female
  Weight: 63 kg

DRUGS (5)
  1. XEPLION [Suspect]
     Indication: PSYCHOTIC DISORDER
     Route: 030
     Dates: start: 20130716, end: 20130716
  2. XEPLION [Suspect]
     Indication: PSYCHOTIC DISORDER
     Route: 030
     Dates: start: 20130618, end: 20130618
  3. XEPLION [Suspect]
     Indication: PSYCHOTIC DISORDER
     Route: 030
     Dates: start: 20130521, end: 20130521
  4. XEPLION [Suspect]
     Indication: PSYCHOTIC DISORDER
     Route: 030
     Dates: start: 20130423, end: 20130423
  5. TERALITHE [Concomitant]
     Indication: AFFECTIVE DISORDER
     Route: 048
     Dates: start: 20121217

REACTIONS (3)
  - Pyrexia [Unknown]
  - Fatigue [Unknown]
  - Injection site pain [Unknown]
